FAERS Safety Report 4515092-9 (Version None)
Quarter: 2004Q4

REPORT INFORMATION
  Report Type: 
  Country: None (occurrence: None)
  Receive Date: 20041126
  Receipt Date: 20041109
  Transmission Date: 20050328
  Serious: Yes (Death)
  Sender: FDA-Public Use
  Company Number: DSA_25395_2004

PATIENT
  Sex: Male

DRUGS (16)
  1. ATIVAN [Suspect]
     Indication: DRUG WITHDRAWAL SYNDROME
     Dosage: 2.5 MG PRN PO
     Route: 048
  2. VOLTAREN [Suspect]
     Indication: DRUG WITHDRAWAL SYNDROME
     Dosage: 25 MG TID PO
     Route: 048
     Dates: end: 20010831
  3. ACUPAN [Suspect]
     Indication: DRUG WITHDRAWAL SYNDROME
     Dosage: DF PO
     Route: 048
     Dates: end: 20010831
  4. PROCHLORPERAZINE MALEATE [Suspect]
     Indication: DRUG WITHDRAWAL SYNDROME
     Dosage: DF PO
     Route: 048
     Dates: end: 20010831
  5. BUSCOPAN [Suspect]
     Dosage: 10 MG PRN PO
     Route: 048
     Dates: end: 20010831
  6. CHLORPROMAZINE [Suspect]
     Indication: DRUG WITHDRAWAL SYNDROME
     Dosage: 50 MG PRN PO
     Route: 048
     Dates: end: 20010831
  7. CLONIDINE [Suspect]
     Indication: DRUG WITHDRAWAL SYNDROME
     Dosage: 1 MG PRN PO
     Route: 048
     Dates: end: 20010831
  8. DIAZEPAM [Suspect]
     Dosage: 10 MG PRN PO
     Route: 048
     Dates: end: 20010831
  9. HEMINEVRIN [Suspect]
     Indication: DRUG WITHDRAWAL SYNDROME
     Dosage: DF PO
     Route: 048
     Dates: start: 20010831, end: 20010831
  10. METOCLOPRAMIDE [Suspect]
     Indication: DRUG WITHDRAWAL SYNDROME
     Dosage: 10 MG Q8HR SC
     Route: 058
     Dates: end: 20010831
  11. NALTREXONE [Suspect]
     Indication: DRUG WITHDRAWAL SYNDROME
     Dosage: DF PO
     Route: 048
     Dates: end: 20010831
  12. OCTREOTIDE [Suspect]
     Indication: DIARRHOEA
     Dosage: 100 MCG Q12HR SC
     Route: 058
     Dates: end: 20010831
  13. OMEPRAZOLE [Suspect]
     Indication: DRUG WITHDRAWAL SYNDROME
     Dosage: 20 MG PO
     Route: 048
     Dates: end: 20010831
  14. ROHYPNOL [Suspect]
     Indication: DRUG WITHDRAWAL SYNDROME
     Dosage: 1 MG PRN PO
     Route: 048
     Dates: end: 20010831
  15. TEMAZEPAM [Suspect]
     Indication: DRUG WITHDRAWAL SYNDROME
     Dosage: 20 MG PRN PO
     Route: 048
     Dates: end: 20010831
  16. ZOFRAN [Suspect]
     Dosage: 8 MG PRN PO
     Route: 048
     Dates: end: 20010831

REACTIONS (2)
  - ASPIRATION [None]
  - VOMITING [None]
